FAERS Safety Report 8586303-8 (Version None)
Quarter: 2012Q3

REPORT INFORMATION
  Report Type: 
  Country: None (occurrence: None)
  Receive Date: 20120810
  Receipt Date: 20120112
  Transmission Date: 20120928
  Serious: Yes (Hospitalization, Other)
  Sender: FDA-Public Use
  Company Number: US-ROCHE-1098224

PATIENT
  Sex: Female

DRUGS (6)
  1. PREDNISONE TAB [Concomitant]
  2. XOLAIR [Suspect]
     Indication: ASTHMA
     Dates: start: 20060201, end: 20070201
  3. THEOPHYLLINE [Concomitant]
  4. FLUTICASONE PROPIONATE [Concomitant]
     Dosage: 500/50-1 PUFF
  5. PREDNISONE TAB [Concomitant]
  6. SINGULAIR [Concomitant]

REACTIONS (6)
  - SLEEP APNOEA SYNDROME [None]
  - PRODUCTIVE COUGH [None]
  - GENERAL PHYSICAL HEALTH DETERIORATION [None]
  - DYSPNOEA [None]
  - CHEST DISCOMFORT [None]
  - LUNG DISORDER [None]
